FAERS Safety Report 4380833-0 (Version None)
Quarter: 2004Q2

REPORT INFORMATION
  Report Type: 
  Country: None (occurrence: None)
  Receive Date: 20040616
  Receipt Date: 20040608
  Transmission Date: 20050107
  Serious: Yes (Hospitalization)
  Sender: FDA-Public Use
  Company Number: 200410379BNE

PATIENT
  Sex: Male

DRUGS (2)
  1. ASPIRIN [Suspect]
     Indication: CEREBROVASCULAR ACCIDENT
     Dosage: ORAL
     Route: 048
     Dates: start: 19960101, end: 20040517
  2. TIAPROFENIC ACID [Suspect]
     Indication: RHEUMATOID ARTHRITIS
     Dosage: 400 MG, TOTAL DAILY, ORAL
     Route: 048
     Dates: start: 20000101, end: 20040518

REACTIONS (4)
  - CHEST PAIN [None]
  - GASTRITIS [None]
  - GASTRITIS EROSIVE [None]
  - OESOPHAGITIS [None]
